FAERS Safety Report 17367169 (Version 3)
Quarter: 2020Q1

REPORT INFORMATION
  Report Type: Spontaneous
  Country: PT (occurrence: PT)
  Receive Date: 20200204
  Receipt Date: 20200303
  Transmission Date: 20200409
  Serious: No
  Sender: FDA-Public Use
  Company Number: PT-JNJFOC-20200145362

PATIENT
  Age: 72 Year
  Sex: Male

DRUGS (3)
  1. PREDNISOLONE. [Concomitant]
     Active Substance: PREDNISOLONE
     Route: 065
  2. PREDNISOLONE. [Concomitant]
     Active Substance: PREDNISOLONE
     Indication: HENOCH-SCHONLEIN PURPURA
     Dosage: 20-40 MG
     Route: 065
  3. INFLIXIMAB, RECOMBINANT [Suspect]
     Active Substance: INFLIXIMAB
     Indication: HENOCH-SCHONLEIN PURPURA
     Route: 042

REACTIONS (2)
  - Product use in unapproved indication [Unknown]
  - Off label use [Unknown]
